FAERS Safety Report 5638072-9 (Version None)
Quarter: 2008Q1

REPORT INFORMATION
  Report Type: 
  Country: None (occurrence: None)
  Receive Date: 20080226
  Receipt Date: 20080212
  Transmission Date: 20080703
  Serious: Yes (Hospitalization)
  Sender: FDA-Public Use
  Company Number: US-SANOFI-SYNTHELABO-A03200706881

PATIENT
  Sex: Female
  Weight: 70.3 kg

DRUGS (9)
  1. PLAQUENIL [Suspect]
     Indication: SJOGREN'S SYNDROME
     Route: 048
     Dates: start: 19920101, end: 20071015
  2. PLAQUENIL [Suspect]
     Indication: RHEUMATOID ARTHRITIS
     Route: 048
     Dates: start: 19920101, end: 20071015
  3. PLAQUENIL [Suspect]
     Route: 048
     Dates: start: 20071209
  4. PLAQUENIL [Suspect]
     Route: 048
     Dates: start: 20071209
  5. HYDROXYCHLOROQUINE GENERIC [Suspect]
     Indication: SJOGREN'S SYNDROME
     Route: 048
     Dates: start: 20071015, end: 20070101
  6. HYDROXYCHLOROQUINE GENERIC [Suspect]
     Indication: RHEUMATOID ARTHRITIS
     Route: 048
     Dates: start: 20071015, end: 20070101
  7. ASPIRIN [Concomitant]
     Indication: ARTHRALGIA
     Dosage: 2 TO 6 TABLETS DAILY
     Route: 048
  8. PREMARIN [Concomitant]
     Indication: HYSTERECTOMY
     Route: 048
     Dates: start: 19930101
  9. ATENOLOL [Concomitant]
     Indication: BLOOD PRESSURE
     Route: 048
     Dates: start: 20020101

REACTIONS (2)
  - ABSCESS OF SALIVARY GLAND [None]
  - DRUG INEFFECTIVE [None]
